FAERS Safety Report 9504117 (Version 1)
Quarter: 2013Q3

REPORT INFORMATION
  Report Type: Spontaneous
  Country: US (occurrence: None)
  Receive Date: 20130905
  Receipt Date: 20130905
  Transmission Date: 20140515
  Serious: Yes (Hospitalization, Disabling)
  Sender: FDA-Public Use
  Company Number: None

PATIENT
  Age: 39 Year
  Sex: Male
  Weight: 80.9 kg

DRUGS (18)
  1. THYMOGLOBULIN [Suspect]
     Indication: TRANSPLANT
     Dosage: IVPB
     Route: 042
     Dates: start: 20130418, end: 20130419
  2. ACETAMINOPHEN [Concomitant]
  3. AMLODIPINE [Concomitant]
  4. CLONIDINE [Concomitant]
  5. CLOTRIMAZOLE TROCHES [Concomitant]
  6. DIPHENHYDRAMINE [Concomitant]
  7. NEXIUM [Concomitant]
  8. HYDRALAZINE [Concomitant]
  9. LABETOLOL [Concomitant]
  10. METHYLPREDNISOLONE [Concomitant]
  11. MORPHINE [Concomitant]
  12. PREDNISONE [Concomitant]
  13. BACTRIM [Concomitant]
  14. TACROLIMUS [Concomitant]
  15. VALGANCICLOVIR [Concomitant]
  16. FENTANYL PCA [Concomitant]
  17. MYCOPHENOLATE MOFETIL [Concomitant]
  18. PERCOCET [Concomitant]

REACTIONS (2)
  - Diarrhoea [None]
  - Gastrointestinal necrosis [None]
